FAERS Safety Report 5047180-5 (Version None)
Quarter: 2006Q3

REPORT INFORMATION
  Report Type: 
  Country: None (occurrence: None)
  Receive Date: 20060703
  Receipt Date: 20060622
  Transmission Date: 20061208
  Serious: Yes (Hospitalization)
  Sender: FDA-Public Use
  Company Number: 2006001169

PATIENT
  Age: 64 Year
  Sex: Female

DRUGS (12)
  1. ERLOTINIB (TABLET) [Suspect]
     Indication: BREAST CANCER METASTATIC
     Dosage: 100 MG (QD), ORAL
     Route: 048
     Dates: start: 20060223, end: 20060515
  2. EVEROLIMUS (EVEROLIMUS) (TABLET) [Suspect]
     Indication: BREAST CANCER METASTATIC
     Dosage: 2.5 MG (QD), ORAL
     Route: 048
     Dates: start: 20060223, end: 20060515
  3. HYDROCHLOROTHIAZIDE [Concomitant]
  4. LOSARTAN POTASSIUM [Concomitant]
  5. SIMVASTATIN [Concomitant]
  6. ESCITALOPRAM OXALATE [Concomitant]
  7. LORAZEPAM [Concomitant]
  8. ASPIRIN [Concomitant]
  9. ONDANSETRON HYDROCHLORIDE [Concomitant]
  10. PROCHLOPERAZINE (PROCHLORPERAZINE) [Concomitant]
  11. PACLITAXEL [Concomitant]
  12. HYZAAR [Concomitant]

REACTIONS (3)
  - BILE DUCT OBSTRUCTION [None]
  - DISEASE PROGRESSION [None]
  - HEPATIC LESION [None]
